FAERS Safety Report 7842121-7 (Version None)
Quarter: 2011Q4

REPORT INFORMATION
  Report Type: 
  Country: None (occurrence: None)
  Receive Date: 20111024
  Receipt Date: 20111024
  Transmission Date: 20120403
  Serious: Yes (Life-Threatening, Other)
  Sender: FDA-Public Use
  Company Number: None

PATIENT
  Age: 54 Year
  Sex: Female
  Weight: 176.9028 kg

DRUGS (1)
  1. ARICEPT [Suspect]
     Indication: COGNITIVE DISORDER
     Dosage: 5 MG 1 DAILY PILL (ARICEPT)
     Dates: start: 20110801

REACTIONS (1)
  - BLOOD GLUCOSE DECREASED [None]
